FAERS Safety Report 7036488-X (Version None)
Quarter: 2010Q4

REPORT INFORMATION
  Report Type: 
  Country: None (occurrence: None)
  Receive Date: 20101011
  Receipt Date: 20100930
  Transmission Date: 20110411
  Serious: Yes (Hospitalization, Other)
  Sender: FDA-Public Use
  Company Number: US-BIOGENIDEC-2010BI034318

PATIENT
  Sex: Female

DRUGS (1)
  1. AVONEX [Suspect]
     Indication: MULTIPLE SCLEROSIS
     Route: 030
     Dates: start: 20010830

REACTIONS (7)
  - ARTHROPATHY [None]
  - FALL [None]
  - GAIT DISTURBANCE [None]
  - INTESTINAL OBSTRUCTION [None]
  - SPINAL FRACTURE [None]
  - SYNOVIAL CYST [None]
  - WEIGHT DECREASED [None]
